FAERS Safety Report 11521761 (Version 2)
Quarter: 2015Q3

REPORT INFORMATION
  Report Type: Spontaneous
  Country: IT (occurrence: IT)
  Receive Date: 20150918
  Receipt Date: 20150921
  Transmission Date: 20151125
  Serious: Yes (Other)
  Sender: FDA-Public Use
  Company Number: IT-SA-2015SA139785

PATIENT
  Age: 59 Year
  Sex: Male

DRUGS (4)
  1. PANTOPRAZOLE [Concomitant]
     Active Substance: PANTOPRAZOLE SODIUM
     Route: 048
  2. TRIATEC [Concomitant]
     Active Substance: RAMIPRIL
     Dosage: STRENGTH: 5 MG
     Route: 048
  3. NORVASC [Concomitant]
     Active Substance: AMLODIPINE BESYLATE
     Dosage: STRENGTH: 5 MG
     Route: 048
  4. PLAVIX [Suspect]
     Active Substance: CLOPIDOGREL BISULFATE
     Indication: CEREBRAL ISCHAEMIA
     Route: 048

REACTIONS (4)
  - Pelvic pain [Unknown]
  - Haematuria [Recovering/Resolving]
  - Pollakiuria [Recovering/Resolving]
  - Strangury [Recovering/Resolving]

NARRATIVE: CASE EVENT DATE: 20150811
